FAERS Safety Report 6217151-1 (Version None)
Quarter: 2009Q2

REPORT INFORMATION
  Report Type: 
  Country: None (occurrence: None)
  Receive Date: 20090606
  Receipt Date: 20090530
  Transmission Date: 20091009
  Serious: Yes (Other)
  Sender: FDA-Public Use
  Company Number: PHHY2009BR21374

PATIENT
  Age: 90 Year
  Sex: Female

DRUGS (2)
  1. FORADIL [Suspect]
     Dosage: UNK
  2. ATROVENT [Concomitant]
     Dosage: 6 NEBULIZATIONS PER DAY

REACTIONS (3)
  - LUNG DISORDER [None]
  - PNEUMONIA [None]
  - SYSTEMIC LUPUS ERYTHEMATOSUS [None]
